FAERS Safety Report 19063720 (Version 1)
Quarter: 2021Q1

REPORT INFORMATION
  Report Type: Spontaneous
  Country: GB (occurrence: GB)
  Receive Date: 20210326
  Receipt Date: 20210326
  Transmission Date: 20210420
  Serious: Yes (Life-Threatening)
  Sender: FDA-Public Use
  Company Number: GB-TEVA-2021-GB-1892757

PATIENT
  Age: 61 Year
  Sex: Female

DRUGS (14)
  1. CLOPIDOGREL [Concomitant]
     Active Substance: CLOPIDOGREL BISULFATE
  2. ZOMORPH [Interacting]
     Active Substance: MORPHINE SULFATE
     Indication: BACK PAIN
     Dosage: 20 MILLIGRAM DAILY;
     Route: 048
  3. ZOPICLONE [Concomitant]
     Active Substance: ZOPICLONE
  4. FUROSEMIDE SODIUM [Concomitant]
     Active Substance: FUROSEMIDE SODIUM
  5. TRAMADOL. [Concomitant]
     Active Substance: TRAMADOL
  6. PROPRANOLOL [Concomitant]
     Active Substance: PROPRANOLOL HYDROCHLORIDE
  7. SALBUTAMOL [Concomitant]
     Active Substance: ALBUTEROL
  8. LINAGLIPTIN [Concomitant]
     Active Substance: LINAGLIPTIN
  9. OMEPRAZOLE. [Concomitant]
     Active Substance: OMEPRAZOLE
  10. TRIMBOW [Concomitant]
     Active Substance: BECLOMETHASONE DIPROPIONATE\FORMOTEROL FUMARATE\GLYCOPYRROLATE
  11. CARBOCISTEINE [Concomitant]
     Active Substance: CARBOCYSTEINE
  12. MIRTAZAPIN [Concomitant]
     Active Substance: MIRTAZAPINE
  13. INSULIN [Concomitant]
     Active Substance: INSULIN NOS
  14. PREGABALIN. [Suspect]
     Active Substance: PREGABALIN
     Indication: DIABETIC MONONEUROPATHY
     Dosage: 500 MILLIGRAM DAILY;
     Route: 048

REACTIONS (3)
  - Potentiating drug interaction [Recovered/Resolved]
  - Respiratory rate decreased [Unknown]
  - Depressed level of consciousness [Unknown]

NARRATIVE: CASE EVENT DATE: 20210304
